FAERS Safety Report 11613463 (Version 2)
Quarter: 2015Q4

REPORT INFORMATION
  Report Type: Report from Study
  Country: US (occurrence: US)
  Receive Date: 20151008
  Receipt Date: 20151109
  Transmission Date: 20160304
  Serious: Yes (Hospitalization)
  Sender: FDA-Public Use
  Company Number: US-KADMON PHARMACEUTICALS, LLC-KAD201510-003448

PATIENT
  Age: 57 Year
  Sex: Female
  Weight: 113.3 kg

DRUGS (22)
  1. ZOLOFT 100 MG [Concomitant]
  2. METFORMIN [Concomitant]
     Active Substance: METFORMIN HYDROCHLORIDE
     Indication: BLOOD GLUCOSE
  3. ASPIRIN 81 MG [Concomitant]
     Active Substance: ASPIRIN
  4. RIBAVIRIN 200 MG TABLETS [Suspect]
     Active Substance: RIBAVIRIN
     Indication: HEPATITIS C
     Dosage: 2 TABLETS IN AM, 3 TABLETS IN PM
     Route: 048
     Dates: start: 201509, end: 201509
  5. METOPROLOL TARTRATE 50 MG [Concomitant]
     Indication: HYPERTENSION
  6. ALPRAZOLAM. [Concomitant]
     Active Substance: ALPRAZOLAM
  7. COLACE [Concomitant]
     Active Substance: DOCUSATE SODIUM
  8. IRON [Concomitant]
     Active Substance: IRON
     Dosage: PILLS
  9. FERROUS SULFATE 520 MG [Concomitant]
     Indication: ANAEMIA
     Dates: start: 201510
  10. PROZAC [Concomitant]
     Active Substance: FLUOXETINE HYDROCHLORIDE
  11. TRAZODONE [Concomitant]
     Active Substance: TRAZODONE HYDROCHLORIDE
  12. OMEPRAZOLE 20 MG [Concomitant]
     Active Substance: OMEPRAZOLE
     Indication: DYSPEPSIA
  13. XANAX 0.5 MG [Concomitant]
     Dosage: TABLET
     Route: 048
  14. COUMADIN [Concomitant]
     Active Substance: WARFARIN SODIUM
  15. GABAPENTIN. [Concomitant]
     Active Substance: GABAPENTIN
     Dates: end: 201510
  16. GLIMEPIRIDE 1 MG [Concomitant]
     Active Substance: GLIMEPIRIDE
     Indication: BLOOD GLUCOSE
  17. COUMADIN [Concomitant]
     Active Substance: WARFARIN SODIUM
     Indication: THROMBOSIS
     Dates: start: 201510
  18. PRAVACHOL 20 MG [Concomitant]
  19. BENADRYL [Concomitant]
     Active Substance: DIPHENHYDRAMINE HYDROCHLORIDE
  20. VIEKIRA PAK [Suspect]
     Active Substance: DASABUVIR\OMBITASVIR\PARITAPREVIR\RITONAVIR
     Indication: HEPATITIS C
     Route: 048
     Dates: start: 201509, end: 201509
  21. METHADONE 90 MG [Concomitant]
  22. IRON [Concomitant]
     Active Substance: IRON
     Indication: ANAEMIA
     Dates: start: 201510

REACTIONS (4)
  - Blood glucose decreased [Recovered/Resolved]
  - Altered state of consciousness [Recovered/Resolved]
  - Pallor [Recovered/Resolved]
  - Fall [Recovered/Resolved]

NARRATIVE: CASE EVENT DATE: 20150928
